FAERS Safety Report 4587986-X (Version None)
Quarter: 2005Q1

REPORT INFORMATION
  Report Type: 
  Country: None (occurrence: None)
  Receive Date: 20050221
  Receipt Date: 20050207
  Transmission Date: 20050727
  Serious: Yes (Hospitalization)
  Sender: FDA-Public Use
  Company Number: US-ABBOTT-05P-163-0289762-00

PATIENT
  Age: 57 Year
  Sex: Female

DRUGS (6)
  1. BIAXIN [Suspect]
     Indication: INFLUENZA
     Route: 048
     Dates: start: 20041001
  2. BIAXIN [Suspect]
     Indication: URINARY TRACT INFECTION
     Route: 048
     Dates: start: 20050129
  3. BIAXIN [Suspect]
     Indication: KIDNEY INFECTION
  4. AZITHROMYCIN [Concomitant]
     Indication: DRUG USE FOR UNKNOWN INDICATION
     Dates: start: 20041001
  5. AMOXICILLIN AND CLAVULANATE POTASSIUM [Concomitant]
     Indication: DRUG USE FOR UNKNOWN INDICATION
     Dates: start: 20041101
  6. DECLINED TO PROVIDE [Concomitant]
     Indication: PAIN

REACTIONS (7)
  - ABNORMAL DREAMS [None]
  - FEELING DRUNK [None]
  - HEADACHE [None]
  - KIDNEY INFECTION [None]
  - NAUSEA [None]
  - SNEEZING [None]
  - URINARY TRACT INFECTION [None]
